FAERS Safety Report 13672609 (Version 11)
Quarter: 2018Q1

REPORT INFORMATION
  Report Type: Report from Study
  Country: US (occurrence: US)
  Receive Date: 20170621
  Receipt Date: 20180308
  Transmission Date: 20180508
  Serious: Yes (Hospitalization, Other)
  Sender: FDA-Public Use
  Company Number: US-AMGEN-USASL2017091674

PATIENT
  Age: 57 Year
  Sex: Male

DRUGS (20)
  1. NPLATE [Suspect]
     Active Substance: ROMIPLOSTIM
     Dosage: 250 MCG, QWK
     Route: 065
  2. NPLATE [Suspect]
     Active Substance: ROMIPLOSTIM
     Dosage: 4 MCG/KG, UNK
     Route: 065
  3. VITAMIN B COMPLEX [Concomitant]
     Active Substance: CYANOCOBALAMIN\DEXPANTHENOL\NIACINAMIDE\PYRIDOXINE HYDROCHLORIDE\RIBOFLAVIN 5^-PHOSPHATE SODIUM\THIAMINE HYDROCHLORIDE\VITAMIN B COMPLEX
     Dosage: 1 DF, QD
     Route: 048
  4. SEPTRA DS [Concomitant]
     Active Substance: SULFAMETHOXAZOLE\TRIMETHOPRIM
     Dosage: 1 DF, BID
     Route: 048
  5. NPLATE [Suspect]
     Active Substance: ROMIPLOSTIM
     Dosage: UNK, 400-450 MCG
     Route: 065
  6. PRILOSEC [Concomitant]
     Active Substance: OMEPRAZOLE MAGNESIUM
     Dosage: 20 MG, QD
     Route: 048
  7. DELTASONE [Suspect]
     Active Substance: PREDNISONE
     Indication: PRODUCT USED FOR UNKNOWN INDICATION
     Dosage: 5 MG, QD
     Route: 048
  8. CYANOCOBALAMIN. [Concomitant]
     Active Substance: CYANOCOBALAMIN
     Dosage: UNK UNK, QD
     Route: 048
  9. VITAMIN B12 [Concomitant]
     Active Substance: CYANOCOBALAMIN
     Dosage: 1 DF, QD
     Route: 048
  10. NPLATE [Suspect]
     Active Substance: ROMIPLOSTIM
     Dosage: 250 MCG, QWK
     Route: 065
  11. NPLATE [Suspect]
     Active Substance: ROMIPLOSTIM
     Dosage: 240 MCG, QWK
     Route: 065
  12. DELTASONE [Suspect]
     Active Substance: PREDNISONE
     Dosage: 10 MG, BID
     Route: 048
     Dates: start: 20160719
  13. DELTASONE [Suspect]
     Active Substance: PREDNISONE
     Dosage: 10 MG, QD
     Route: 048
     Dates: start: 20160721
  14. NPLATE [Suspect]
     Active Substance: ROMIPLOSTIM
     Indication: IMMUNE THROMBOCYTOPENIC PURPURA
     Dosage: 260 MCG, UNK
     Route: 065
     Dates: start: 20140207
  15. DELTASONE [Suspect]
     Active Substance: PREDNISONE
     Dosage: 60 MG, QD
     Route: 048
  16. SULFACETAMIDE SODIUM AND SULFUR [Concomitant]
     Active Substance: SULFACETAMIDE SODIUM\SULFUR
     Dosage: 10.5%, QWK
  17. OSCAL D [Concomitant]
     Active Substance: CALCIUM CARBONATE\CHOLECALCIFEROL
     Dosage: 1 DF (250-125 MG), QD
     Route: 048
  18. PREDNISONE. [Concomitant]
     Active Substance: PREDNISONE
     Dosage: UNK UNK, QD
  19. NPLATE [Suspect]
     Active Substance: ROMIPLOSTIM
     Dosage: 230 MCG, QWK
     Route: 065
  20. BACTRIM DS [Suspect]
     Active Substance: SULFAMETHOXAZOLE\TRIMETHOPRIM
     Indication: LOCALISED INFECTION
     Dosage: 1 DF (800-160 MG), BID
     Route: 048

REACTIONS (39)
  - Bone pain [Recovered/Resolved]
  - Feeling abnormal [Unknown]
  - Muscular weakness [Unknown]
  - Insomnia [Unknown]
  - Pain in extremity [Recovered/Resolved]
  - Intentional product misuse [Unknown]
  - Exostosis [Unknown]
  - Atrial fibrillation [Unknown]
  - Musculoskeletal pain [Unknown]
  - Platelet count abnormal [Recovered/Resolved]
  - Thrombocytopenia [Recovering/Resolving]
  - Drug effect incomplete [Unknown]
  - Dyspepsia [Unknown]
  - Cognitive disorder [Recovering/Resolving]
  - Infection [Unknown]
  - Confusional state [Unknown]
  - Abdominal pain [Unknown]
  - Leukocytosis [Recovering/Resolving]
  - Abscess limb [Recovered/Resolved]
  - Hypoaesthesia [Unknown]
  - Nasopharyngitis [Recovered/Resolved]
  - Haematuria [Unknown]
  - Hypotension [Unknown]
  - Dysgeusia [Unknown]
  - Headache [Recovered/Resolved]
  - Myalgia [Unknown]
  - Product storage error [Unknown]
  - Cerebrovascular disorder [Unknown]
  - Anxiety [Unknown]
  - Pneumonia [Recovered/Resolved]
  - Cellulitis [Recovered/Resolved]
  - C-reactive protein increased [Unknown]
  - Localised infection [Recovered/Resolved]
  - Paraesthesia [Unknown]
  - Dizziness [Unknown]
  - Increased tendency to bruise [Not Recovered/Not Resolved]
  - Intentional self-injury [Unknown]
  - Arthralgia [Unknown]
  - Skin abrasion [Unknown]

NARRATIVE: CASE EVENT DATE: 201408
